FAERS Safety Report 7375374-2 (Version None)
Quarter: 2011Q1

REPORT INFORMATION
  Report Type: 
  Country: None (occurrence: None)
  Receive Date: 20110325
  Receipt Date: 20110321
  Transmission Date: 20110831
  Serious: Yes (Other)
  Sender: FDA-Public Use
  Company Number: DE-PFIZER INC-DE-WYE-G04589309

PATIENT
  Age: 28 Year
  Sex: Female

DRUGS (6)
  1. TREVILOR RETARD [Suspect]
     Indication: ANXIETY DISORDER
     Dosage: 150 MG, 1X/DAY
     Route: 048
     Dates: start: 20090501
  2. TREVILOR RETARD [Suspect]
     Indication: PANIC DISORDER
  3. SEROQUEL [Concomitant]
     Indication: OBSESSIVE-COMPULSIVE DISORDER
  4. TREVILOR RETARD [Suspect]
     Indication: OBSESSIVE-COMPULSIVE DISORDER
  5. SEROQUEL [Concomitant]
     Indication: PANIC DISORDER
     Dosage: 50 MG, 2X/DAY
     Route: 048
     Dates: start: 20090501
  6. BISOPROLOL [Concomitant]
     Dosage: 2.5 MG, 1X/DAY
     Route: 048
     Dates: start: 20090501

REACTIONS (2)
  - GESTATIONAL DIABETES [None]
  - CAESAREAN SECTION [None]
